FAERS Safety Report 11629027 (Version 1)
Quarter: 2015Q4

REPORT INFORMATION
  Report Type: Spontaneous
  Country: US (occurrence: US)
  Receive Date: 20151014
  Receipt Date: 20151014
  Transmission Date: 20160304
  Serious: No
  Sender: FDA-Public Use
  Company Number: US-G+W LABORATORIES-1042946

PATIENT
  Sex: Female
  Weight: 98.64 kg

DRUGS (1)
  1. SULFANILAMIDE [Suspect]
     Active Substance: SULFANILAMIDE
     Indication: PRODUCT USED FOR UNKNOWN INDICATION
     Route: 065

REACTIONS (1)
  - Drug hypersensitivity [Unknown]
